FAERS Safety Report 8784427 (Version 1)
Quarter: 2012Q4

REPORT INFORMATION
  Report Type: 
  Country: US (occurrence: US)
  Receive Date: 20120913
  Receipt Date: 20120913
  Transmission Date: 20130627
  Serious: No
  Sender: FDA-Public Use
  Company Number: US-PFIZER INC-2012223474

PATIENT
  Age: 48 Year
  Sex: Male
  Weight: 107 kg

DRUGS (1)
  1. ATORVASTATIN CALCIUM [Suspect]
     Indication: BLOOD CHOLESTEROL ABNORMAL
     Dosage: 40 mg daily
     Route: 048
     Dates: start: 201209

REACTIONS (2)
  - Nausea [Unknown]
  - Feeling abnormal [Unknown]
